FAERS Safety Report 8699041 (Version 5)
Quarter: 2013Q4

REPORT INFORMATION
  Report Type: Spontaneous
  Country: US (occurrence: US)
  Receive Date: 20120802
  Receipt Date: 20131016
  Transmission Date: 20140711
  Serious: Yes (Hospitalization, Other)
  Sender: FDA-Public Use
  Company Number: US-009507513-2012SP017428

PATIENT
  Sex: Female
  Weight: 56.24 kg

DRUGS (1)
  1. NUVARING [Suspect]
     Indication: CONTRACEPTION
     Dosage: UNK
     Route: 067
     Dates: start: 201101, end: 20110428

REACTIONS (22)
  - Myocardial infarction [Unknown]
  - Pulmonary embolism [Recovered/Resolved]
  - Heart rate irregular [Unknown]
  - Atrial fibrillation [Unknown]
  - Pulmonary fibrosis [Unknown]
  - Arrhythmia [Unknown]
  - Palpitations [Unknown]
  - Tachycardia [Unknown]
  - Bradycardia [Unknown]
  - Depression [Unknown]
  - Alopecia [Unknown]
  - Uterine dilation and curettage [Unknown]
  - Hypercoagulation [Unknown]
  - Stress [Unknown]
  - Inappropriate schedule of drug administration [Unknown]
  - Anaemia [Unknown]
  - Computerised tomogram thorax [Unknown]
  - Wolff-Parkinson-White syndrome [Unknown]
  - Anxiety [Unknown]
  - Pulmonary infarction [Unknown]
  - Splenic cyst [Unknown]
  - Atelectasis [Unknown]
